FAERS Safety Report 5726315-2 (Version None)
Quarter: 2008Q2

REPORT INFORMATION
  Report Type: 
  Country: None (occurrence: None)
  Receive Date: 20080502
  Receipt Date: 20080417
  Transmission Date: 20081010
  Serious: Yes (Hospitalization)
  Sender: FDA-Public Use
  Company Number: DE-GENENTECH-259723

PATIENT
  Sex: Male
  Weight: 80 kg

DRUGS (6)
  1. BEVACIZUMAB [Suspect]
     Indication: COLORECTAL CANCER METASTATIC
     Dosage: 425 MG, Q2W
     Route: 042
     Dates: start: 20071205
  2. OXALIPLATIN [Suspect]
     Indication: COLORECTAL CANCER METASTATIC
     Dosage: 198 MG, ALL 2 WEEKS
     Route: 042
     Dates: start: 20071205
  3. LEUCOVORIN CALCIUM [Suspect]
     Indication: COLORECTAL CANCER METASTATIC
     Dosage: 792 MG, ALL 2 WEEKS
     Route: 042
     Dates: start: 20071205
  4. FLUOROURACIL [Suspect]
     Indication: COLORECTAL CANCER METASTATIC
     Dosage: 792 MG, ALL 2 WEEKS
     Route: 042
     Dates: start: 20071205
  5. AMARYL [Concomitant]
     Indication: DRUG USE FOR UNKNOWN INDICATION
  6. INSULIN NOVO LENTE [Concomitant]
     Indication: DRUG USE FOR UNKNOWN INDICATION

REACTIONS (1)
  - NEURODEGENERATIVE DISORDER [None]
